FAERS Safety Report 4567466-8 (Version None)
Quarter: 2005Q1

REPORT INFORMATION
  Report Type: 
  Country: None (occurrence: None)
  Receive Date: 20050127
  Receipt Date: 20050117
  Transmission Date: 20050727
  Serious: Yes (Hospitalization)
  Sender: FDA-Public Use
  Company Number: 2004114982

PATIENT
  Age: 66 Year
  Sex: Male
  Weight: 57 kg

DRUGS (5)
  1. ADRIACIN (DOXORUBICIN HYDROCHLORIDE) [Suspect]
     Indication: LYMPHOMA
     Dosage: 58 MG (58 MG, 1 D), INTRAVENOUS
     Route: 042
     Dates: start: 20040409, end: 20040409
  2. CYCLOPHOSPHAMIDE [Suspect]
     Indication: LYMPHOMA
     Dosage: 1200 MG (1200 MG, 1D), INTRAVENOUS
     Route: 042
     Dates: start: 20040409, end: 20040409
  3. VINCRISTINE SULFATE [Suspect]
     Indication: LYMPHOMA
     Dosage: 1.6 MG (1.6 MG, 1 D), INTRAVENOUS
     Route: 042
     Dates: start: 20040409, end: 20040409
  4. PREDNISOLONE [Suspect]
     Dosage: SEE IMAGE
     Route: 048
     Dates: end: 20040428
  5. PREDNISOLONE [Suspect]
     Dosage: SEE IMAGE
     Route: 048
     Dates: start: 20040409

REACTIONS (2)
  - CHOLESTASIS [None]
  - HEPATOTOXICITY [None]
